FAERS Safety Report 7771339-7 (Version None)
Quarter: 2011Q3

REPORT INFORMATION
  Report Type: 
  Country: None (occurrence: None)
  Receive Date: 20110920
  Receipt Date: 20110909
  Transmission Date: 20111222
  Serious: Yes (Life-Threatening, Hospitalization)
  Sender: FDA-Public Use
  Company Number: IPC201109-003173

PATIENT
  Age: 62 Year
  Sex: Male

DRUGS (1)
  1. METFORMIN HCL [Suspect]
     Indication: DIABETES MELLITUS
     Dosage: 1000 MG TWICE DAILY

REACTIONS (9)
  - HEART RATE INCREASED [None]
  - METABOLIC ACIDOSIS [None]
  - HYPERTENSION [None]
  - ABDOMINAL PAIN [None]
  - HAEMODIALYSIS [None]
  - HYPOGLYCAEMIA [None]
  - RESPIRATORY RATE INCREASED [None]
  - RESPIRATORY DISTRESS [None]
  - HYPOTHERMIA [None]
